FAERS Safety Report 20463035 (Version 2)
Quarter: 2022Q1

REPORT INFORMATION
  Report Type: Report from Study
  Country: SE (occurrence: SE)
  Receive Date: 20220211
  Receipt Date: 20220316
  Transmission Date: 20220423
  Serious: Yes (Hospitalization)
  Sender: FDA-Public Use
  Company Number: SE-GE HEALTHCARE-2022CSU000810

PATIENT
  Age: 66 Year
  Sex: Male
  Weight: 105 kg

DRUGS (9)
  1. VIZAMYL [Suspect]
     Active Substance: FLUTEMETAMOL F-18
     Indication: Positron emission tomogram
     Dosage: 161 MBQ, SINGLE
     Route: 042
     Dates: start: 20220203, end: 20220203
  2. VIZAMYL [Suspect]
     Active Substance: FLUTEMETAMOL F-18
     Indication: Product used for unknown indication
  3. ASPIRIN [Concomitant]
     Active Substance: ASPIRIN
     Dosage: 75 MG, QD
  4. Betolvex [Concomitant]
     Dosage: 1 MG, QD
  5. FELODIPINE [Concomitant]
     Active Substance: FELODIPINE
     Dosage: 2.5 MG, QD
  6. ATORVASTATIN [Concomitant]
     Active Substance: ATORVASTATIN
     Dosage: 40 MG, QD
  7. CLONAZEPAM [Concomitant]
     Active Substance: CLONAZEPAM
     Dosage: 1 MG, BID
  8. SERTRALINE HYDROCHLORIDE [Concomitant]
     Active Substance: SERTRALINE HYDROCHLORIDE
     Dosage: 75 MG, QD
  9. CIALIS [Concomitant]
     Active Substance: TADALAFIL
     Dosage: 10 MG, PRN

REACTIONS (3)
  - Myoclonus [Recovered/Resolved]
  - Epilepsy [Recovered/Resolved]
  - Aphasia [Recovered/Resolved]

NARRATIVE: CASE EVENT DATE: 20220203
